FAERS Safety Report 5055858-2 (Version None)
Quarter: 2006Q3

REPORT INFORMATION
  Report Type: 
  Country: None (occurrence: None)
  Receive Date: 20060718
  Receipt Date: 20060718
  Transmission Date: 20061208
  Serious: No
  Sender: FDA-Public Use
  Company Number: None

PATIENT
  Sex: Female
  Weight: 133.8 kg

DRUGS (8)
  1. TRASTUZMAB [Suspect]
     Indication: BREAST CANCER METASTATIC
     Dosage: 6 MG/KG Q3 WEEKS IV
     Route: 042
     Dates: start: 20010420, end: 20060609
  2. LETROZOLE [Suspect]
     Indication: BREAST CANCER METASTATIC
     Dosage: 2.5 MG DAILY PO
     Route: 048
     Dates: start: 20010420, end: 20060628
  3. LOTENSIN [Concomitant]
  4. ZYRTEC [Concomitant]
  5. HYDROCHLOROTHIAZIDE [Concomitant]
  6. NEXIUM [Concomitant]
  7. DETROL LA [Concomitant]
  8. ACETAMINOPHEN [Concomitant]

REACTIONS (4)
  - HAEMATOCRIT DECREASED [None]
  - HAEMOGLOBIN DECREASED [None]
  - PLATELET COUNT DECREASED [None]
  - WHITE BLOOD CELL COUNT DECREASED [None]
